FAERS Safety Report 9027700 (Version 1)
Quarter: 2013Q1

REPORT INFORMATION
  Report Type: Report from Study
  Country: JP (occurrence: JP)
  Receive Date: 20130124
  Receipt Date: 20130124
  Transmission Date: 20140127
  Serious: Yes (Hospitalization)
  Sender: FDA-Public Use
  Company Number: JP-009507513-2012SP018282

PATIENT
  Age: 55 Year
  Sex: Female
  Weight: 65 kg

DRUGS (11)
  1. PEGINTRON POWDER FOR INJECTION 100MICROG [Suspect]
     Indication: CHRONIC HEPATITIS C
     Dosage: 1.5 UG/KG/QW
     Route: 058
     Dates: start: 20120207, end: 20120313
  2. PEGINTRON POWDER FOR INJECTION 100MICROG [Suspect]
     Dosage: 1.5 UG/KG/QW
     Route: 058
     Dates: start: 20120329
  3. PEGINTRON POWDER FOR INJECTION 100MICROG [Suspect]
     Dosage: 100 UG
     Route: 058
     Dates: start: 20120403
  4. REBETOL [Suspect]
     Indication: CHRONIC HEPATITIS C
     Dosage: 400 MG, QD
     Route: 048
     Dates: start: 20120207, end: 20120305
  5. REBETOL [Suspect]
     Dosage: 200 MG, QD
     Route: 048
     Dates: start: 20120306, end: 20120320
  6. REBETOL [Suspect]
     Dosage: 200 MG, QD
     Route: 048
     Dates: start: 20120410
  7. TELAVIC [Suspect]
     Indication: CHRONIC HEPATITIS C
     Dosage: 1500 MG, QD
     Route: 048
     Dates: start: 20120207, end: 20120320
  8. TELAVIC [Suspect]
     Dosage: 1500 MG, QD
     Route: 048
     Dates: start: 20120403, end: 20120423
  9. TELAVIC [Suspect]
     Dosage: 750 MG, QD
     Route: 048
     Dates: start: 20120424, end: 20120430
  10. BLOPRESS [Concomitant]
     Indication: HYPERTENSION
     Dosage: 8 MG, QD
     Route: 048
  11. PARIET [Concomitant]
     Indication: PROPHYLAXIS
     Dosage: 10 MG, QD
     Route: 048
     Dates: start: 20120207

REACTIONS (1)
  - Pyelonephritis [Recovered/Resolved]
